FAERS Safety Report 20172291 (Version 1)
Quarter: 2021Q4

REPORT INFORMATION
  Report Type: Spontaneous
  Country: FR (occurrence: FR)
  Receive Date: 20211210
  Receipt Date: 20211210
  Transmission Date: 20220303
  Serious: Yes (Death, Other)
  Sender: FDA-Public Use
  Company Number: FR-SCALL-2021-FR-000246

PATIENT
  Sex: Female

DRUGS (1)
  1. RABEPRAZOLE SODIUM [Suspect]
     Active Substance: RABEPRAZOLE SODIUM
     Indication: Oesophagitis
     Route: 048

REACTIONS (5)
  - Intestinal gangrene [Fatal]
  - Clostridium difficile colitis [Fatal]
  - Strangulated hernia [Unknown]
  - Hernial eventration [Unknown]
  - Hernia obstructive [Unknown]

NARRATIVE: CASE EVENT DATE: 19960101
